FAERS Safety Report 12683829 (Version 3)
Quarter: 2016Q3

REPORT INFORMATION
  Report Type: Spontaneous
  Country: JP (occurrence: JP)
  Receive Date: 20160825
  Receipt Date: 20160915
  Transmission Date: 20161109
  Serious: Yes (Death, Life-Threatening, Other)
  Sender: FDA-Public Use
  Company Number: JP-009507513-1608JPN011586

PATIENT
  Age: 85 Year
  Sex: Male
  Weight: 36 kg

DRUGS (26)
  1. CANCIDAS [Suspect]
     Active Substance: CASPOFUNGIN ACETATE
     Indication: BRONCHOPULMONARY ASPERGILLOSIS
     Dosage: 50 MG, QD
     Route: 041
     Dates: start: 20160812, end: 20160817
  2. ZOSYN [Concomitant]
     Active Substance: PIPERACILLIN SODIUM\TAZOBACTAM SODIUM
     Indication: PNEUMONIA BACTERIAL
     Dosage: 4.5 G, QD
     Route: 041
     Dates: start: 20160808, end: 20160811
  3. NYROZIN [Concomitant]
     Indication: PROPHYLAXIS
  4. KLARICID [Concomitant]
     Active Substance: CLARITHROMYCIN
     Indication: ATYPICAL MYCOBACTERIAL INFECTION
     Dosage: 400 MG, BID
     Route: 048
     Dates: start: 20160807, end: 20160817
  5. TALION (BEPOTASTINE BESYLATE) [Concomitant]
     Active Substance: BEPOTASTINE
     Indication: CONJUNCTIVITIS ALLERGIC
     Dosage: 20 MG, BID
     Route: 048
     Dates: start: 20160807, end: 20160817
  6. NIZORAL [Concomitant]
     Active Substance: KETOCONAZOLE
     Indication: TINEA INFECTION
  7. POSTERISAN [Concomitant]
     Active Substance: LIDOCAINE
     Indication: HAEMORRHOIDS
     Dosage: PROPERLY
     Route: 061
     Dates: start: 20160727
  8. ZOPICLONE [Concomitant]
     Active Substance: ZOPICLONE
     Indication: NEURALGIA
     Dosage: 7.5 MG, QD
     Route: 048
     Dates: start: 20160807, end: 20160817
  9. TWINPAL [Concomitant]
     Active Substance: AMINO ACIDS\CARBOHYDRATES\ELECTROLYTES NOS\VITAMINS
     Indication: PROPHYLAXIS
  10. EBUTOL [Concomitant]
     Active Substance: ETHAMBUTOL HYDROCHLORIDE
     Indication: ATYPICAL MYCOBACTERIAL INFECTION
     Dosage: 750 MG, QD
     Route: 048
     Dates: start: 20160807, end: 20160817
  11. GRACEVIT [Concomitant]
     Active Substance: SITAFLOXACIN
     Indication: ATYPICAL MYCOBACTERIAL INFECTION
     Dosage: 100 MG, QD
     Route: 048
     Dates: start: 20160807, end: 20160817
  12. NIZORAL [Concomitant]
     Active Substance: KETOCONAZOLE
     Indication: DECUBITUS ULCER
     Dosage: PROPERLY
     Route: 061
     Dates: start: 20160727
  13. MEROPENEM. [Concomitant]
     Active Substance: MEROPENEM
     Indication: PNEUMONIA BACTERIAL
     Dosage: 0.5 G, BID
     Route: 041
     Dates: start: 20160811
  14. NYROZIN [Concomitant]
     Indication: NUTRITIONAL SUPPLEMENTATION
  15. LANSOPRAZOLE. [Concomitant]
     Active Substance: LANSOPRAZOLE
     Indication: GASTROOESOPHAGEAL REFLUX DISEASE
     Dosage: 15 MG, QD
     Route: 048
     Dates: start: 20160809, end: 20160817
  16. SUNRYTHM [Concomitant]
     Active Substance: PILSICAINIDE HYDROCHLORIDE
     Indication: ATRIAL FIBRILLATION
     Dosage: 50 MG, QD
     Route: 042
     Dates: start: 20160813, end: 20160813
  17. TWINPAL [Concomitant]
     Active Substance: AMINO ACIDS\CARBOHYDRATES\ELECTROLYTES NOS\VITAMINS
     Indication: PNEUMONIA BACTERIAL
     Dosage: 500 ML, QD
     Route: 042
     Dates: start: 20160813, end: 20160813
  18. LYRICA [Concomitant]
     Active Substance: PREGABALIN
     Indication: NEURALGIA
     Dosage: 50 MG, QD
     Route: 048
     Dates: start: 20160808
  19. NYROZIN [Concomitant]
     Indication: PNEUMONIA BACTERIAL
     Dosage: 10 ML, QD
     Route: 042
     Dates: start: 20160814
  20. RIFAMPIN. [Concomitant]
     Active Substance: RIFAMPIN
     Indication: ATYPICAL MYCOBACTERIAL INFECTION
     Dosage: 450 MG, QD
     Route: 048
     Dates: start: 20160807, end: 20160817
  21. VESICARE [Concomitant]
     Active Substance: SOLIFENACIN SUCCINATE
     Indication: HYPERTONIC BLADDER
     Dosage: 5 MG, QD
     Route: 048
     Dates: start: 20160809, end: 20160817
  22. CANCIDAS [Suspect]
     Active Substance: CASPOFUNGIN ACETATE
     Indication: BRONCHOPULMONARY ASPERGILLOSIS
     Dosage: 70 MG, QD
     Route: 041
     Dates: start: 20160811, end: 20160811
  23. LYRICA [Concomitant]
     Active Substance: PREGABALIN
     Indication: SLEEP DISORDER
  24. DIGOSIN [Concomitant]
     Active Substance: DIGOXIN
     Indication: ATRIAL FIBRILLATION
     Dosage: 0.25 MG, QD
     Route: 042
     Dates: start: 20160813, end: 20160813
  25. TWINPAL [Concomitant]
     Active Substance: AMINO ACIDS\CARBOHYDRATES\ELECTROLYTES NOS\VITAMINS
     Indication: NUTRITIONAL SUPPLEMENTATION
  26. ZOPICLONE [Concomitant]
     Active Substance: ZOPICLONE
     Indication: SLEEP DISORDER

REACTIONS (1)
  - Atypical mycobacterial infection [Fatal]

NARRATIVE: CASE EVENT DATE: 20160816
